FAERS Safety Report 19303563 (Version 1)
Quarter: 2021Q2

REPORT INFORMATION
  Report Type: Report from Study
  Country: GR (occurrence: GR)
  Receive Date: 20210525
  Receipt Date: 20210525
  Transmission Date: 20210717
  Serious: Yes (Other)
  Sender: FDA-Public Use
  Company Number: GR-TAKEDA-2021TUS032274

PATIENT
  Age: 49 Year
  Sex: Male
  Weight: 77 kg

DRUGS (3)
  1. VEDOLIZUMAB [Suspect]
     Active Substance: VEDOLIZUMAB
     Indication: COLITIS ULCERATIVE
     Dosage: 300 MILLIGRAM, Q4WEEKS
     Route: 042
     Dates: start: 20191112, end: 20210210
  2. BUDENOFALK [Concomitant]
     Active Substance: BUDESONIDE
     Indication: INFLAMMATION
     Dosage: 2 MILLIGRAM, QD
     Route: 054
     Dates: start: 20201209
  3. SALOFALK [AMINOSALICYLIC ACID] [Concomitant]
     Active Substance: AMINOSALICYLIC ACID
     Indication: INFLAMMATION
     Dosage: 1 GRAM, QD
     Dates: start: 20201209

REACTIONS (1)
  - Colitis ulcerative [Recovering/Resolving]

NARRATIVE: CASE EVENT DATE: 20210210
